FAERS Safety Report 5116269-4 (Version None)
Quarter: 2006Q3

REPORT INFORMATION
  Report Type: 
  Country: None (occurrence: None)
  Receive Date: 20060925
  Receipt Date: 20060914
  Transmission Date: 20061208
  Serious: Yes (Life-Threatening, Other)
  Sender: FDA-Public Use
  Company Number: S05 USA-05179-01

PATIENT
  Age: 18 Year
  Sex: Female

DRUGS (4)
  1. LEXAPRO [Suspect]
     Indication: ANXIETY
     Dosage: 10  MG QD PO
     Route: 048
     Dates: end: 20051207
  2. LEXAPRO [Suspect]
     Indication: PANIC ATTACK
     Dosage: 10  MG QD PO
     Route: 048
     Dates: end: 20051207
  3. VITAMIN AND MINERAL PRENATAL SUPPLEMENT W/ FOLIC ACID CAP [Concomitant]
  4. EPIDURAL (NOS) [Concomitant]

REACTIONS (15)
  - CAESAREAN SECTION [None]
  - CERVICAL INCOMPETENCE [None]
  - DRUG EXPOSURE DURING PREGNANCY [None]
  - DYSMENORRHOEA [None]
  - INFECTION [None]
  - LYMPHOCYTE PERCENTAGE DECREASED [None]
  - NASOPHARYNGITIS [None]
  - NEUTROPHIL PERCENTAGE INCREASED [None]
  - PLACENTAL DISORDER [None]
  - PREMATURE LABOUR [None]
  - PREMATURE SEPARATION OF PLACENTA [None]
  - RHESUS ANTIBODIES POSITIVE [None]
  - THERAPY NON-RESPONDER [None]
  - TOCOLYSIS [None]
  - VAGINAL HAEMORRHAGE [None]
